FAERS Safety Report 9845091 (Version 1)
Quarter: 2014Q1

REPORT INFORMATION
  Report Type: Spontaneous
  Country: US (occurrence: US)
  Receive Date: 20140127
  Receipt Date: 20140127
  Transmission Date: 20141002
  Serious: Yes (Death, Other)
  Sender: FDA-Public Use
  Company Number: US-MALLINCKRODT-T201400493

PATIENT
  Age: 37 Year
  Sex: Male

DRUGS (10)
  1. FENTANYL TRANSDERMAL SYSTEM [Suspect]
     Indication: PRODUCT USED FOR UNKNOWN INDICATION
     Dosage: 50 UG/HR, UNK
     Route: 062
  2. FENTANYL TRANSDERMAL SYSTEM [Suspect]
     Dosage: 100 UG/HR, UNK
     Route: 062
  3. FENTANYL TRANSDERMAL SYSTEM [Suspect]
     Dosage: 75 UG/HR, UNK
     Route: 062
  4. DIAZEPAM [Suspect]
     Indication: PRODUCT USED FOR UNKNOWN INDICATION
     Route: 065
  5. GABAPENTIN [Suspect]
     Indication: PRODUCT USED FOR UNKNOWN INDICATION
     Route: 048
  6. GABAPENTIN [Suspect]
     Dosage: UNK
     Route: 062
  7. CYANOCOBALAMIN [Concomitant]
     Route: 065
  8. CALCIUM + VIT D [Concomitant]
     Route: 065
  9. METHADONE [Concomitant]
     Route: 065
  10. HYDROCODONE BITARTRATE AND ACETAMINOPHEN [Concomitant]
     Route: 065

REACTIONS (6)
  - Toxicity to various agents [Fatal]
  - Asphyxia [Fatal]
  - Drug administration error [Fatal]
  - Cardio-respiratory arrest [Fatal]
  - Unresponsive to stimuli [Recovered/Resolved]
  - Haematoma [Unknown]
